FAERS Safety Report 6980603-0 (Version None)
Quarter: 2010Q3

REPORT INFORMATION
  Report Type: 
  Country: None (occurrence: None)
  Receive Date: 20100914
  Receipt Date: 20100902
  Transmission Date: 20110219
  Serious: Yes (Other)
  Sender: FDA-Public Use
  Company Number: US-PFIZER INC-2010083016

PATIENT
  Sex: Female

DRUGS (6)
  1. CHANTIX [Suspect]
     Indication: SMOKING CESSATION THERAPY
     Dosage: UNK
     Route: 048
     Dates: start: 20090401, end: 20090901
  2. LORTAB [Concomitant]
     Indication: PAIN MANAGEMENT
     Dosage: UNK
     Dates: start: 20040101
  3. MONTELUKAST SODIUM [Concomitant]
     Indication: ASTHMA
     Dosage: UNK
     Dates: start: 20081201
  4. SYMBICORT [Concomitant]
     Indication: ASTHMA
     Dosage: UNK
     Dates: start: 20081201
  5. ALBUTEROL [Concomitant]
     Indication: ASTHMA
     Dosage: UNK
     Dates: start: 20081201
  6. TOPAMAX [Concomitant]
     Indication: MIGRAINE
     Dosage: UNK

REACTIONS (4)
  - ANXIETY [None]
  - DEPRESSION [None]
  - MOOD SWINGS [None]
  - POST-TRAUMATIC STRESS DISORDER [None]
